FAERS Safety Report 13507137 (Version 1)
Quarter: 2017Q2

REPORT INFORMATION
  Report Type: Spontaneous
  Country: US (occurrence: US)
  Receive Date: 20170502
  Receipt Date: 20170502
  Transmission Date: 20170830
  Serious: Yes (Hospitalization)
  Sender: FDA-Public Use
  Company Number: None

PATIENT
  Age: 45 Year
  Sex: Male
  Weight: 96.3 kg

DRUGS (3)
  1. DIAZEPAM. [Concomitant]
     Active Substance: DIAZEPAM
  2. DEPAKOTE EXTENDED RELEASE [Concomitant]
  3. CLOZAPINE. [Suspect]
     Active Substance: CLOZAPINE
     Indication: BIPOLAR DISORDER
     Route: 048
     Dates: start: 20170107, end: 20170122

REACTIONS (10)
  - Cough [None]
  - Tachycardia [None]
  - Hyperhidrosis [None]
  - Troponin increased [None]
  - Blood creatinine increased [None]
  - Neuroleptic malignant syndrome [None]
  - Diarrhoea [None]
  - Hypotension [None]
  - Myocarditis [None]
  - Pyrexia [None]

NARRATIVE: CASE EVENT DATE: 20170120
